FAERS Safety Report 7481057-0 (Version None)
Quarter: 2011Q2

REPORT INFORMATION
  Report Type: 
  Country: None (occurrence: None)
  Receive Date: 20110516
  Receipt Date: 20101229
  Transmission Date: 20111010
  Serious: Yes (Hospitalization)
  Sender: FDA-Public Use
  Company Number: US-BAYER-201035535NA

PATIENT
  Age: 30 Year
  Sex: Female
  Weight: 97.279 kg

DRUGS (9)
  1. SODIUM CHLORIDE [Concomitant]
     Indication: PNEUMONITIS
     Dosage: UNK
     Route: 042
     Dates: start: 20020410, end: 20020412
  2. YASMIN [Suspect]
     Indication: ENDOMETRIOSIS
     Dosage: UNK UNK, UNK
     Route: 048
     Dates: start: 20020101, end: 20020401
  3. SOLU-MEDROL [Concomitant]
     Indication: PNEUMONITIS
     Route: 042
  4. MULTI-VITAMIN [Concomitant]
     Dosage: UNK UNK, QD
  5. ANTIBIOTICS [Concomitant]
     Indication: PNEUMONITIS
     Dosage: UNK
     Route: 042
     Dates: start: 20020410, end: 20020412
  6. PREDNISONE [Concomitant]
     Dosage: 20 MG TAPERING TO 10 MG DAILY
     Route: 048
     Dates: start: 20020421, end: 20020423
  7. CEFTIN [Concomitant]
     Dosage: 250 MG, BID
  8. YASMIN [Suspect]
     Indication: PREMENSTRUAL SYNDROME
  9. VITAMIN B6 [Concomitant]
     Dosage: UNK UNK, QD

REACTIONS (3)
  - DEEP VEIN THROMBOSIS [None]
  - LIMB DISCOMFORT [None]
  - MENTAL DISORDER [None]
